FAERS Safety Report 19456394 (Version 1)
Quarter: 2021Q2

REPORT INFORMATION
  Report Type: Spontaneous
  Country: CN (occurrence: CN)
  Receive Date: 20210624
  Receipt Date: 20210624
  Transmission Date: 20210717
  Serious: Yes (Other)
  Sender: FDA-Public Use
  Company Number: CN-ROCHE-2854501

PATIENT
  Age: 50 Year
  Sex: Male

DRUGS (35)
  1. RITUXIMAB. [Suspect]
     Active Substance: RITUXIMAB
     Route: 065
     Dates: start: 20150708
  2. RITUXIMAB. [Suspect]
     Active Substance: RITUXIMAB
     Route: 065
     Dates: start: 20201125
  3. DOXORUBICIN [Concomitant]
     Active Substance: DOXORUBICIN
     Dates: start: 20150829
  4. DOXORUBICIN [Concomitant]
     Active Substance: DOXORUBICIN
     Dates: start: 20150919
  5. VINCRISTINE [Concomitant]
     Active Substance: VINCRISTINE
     Indication: B-CELL LYMPHOMA
     Dates: start: 20150610
  6. PREDNISONE. [Concomitant]
     Active Substance: PREDNISONE
     Indication: B-CELL LYMPHOMA
     Dates: start: 20150610
  7. CYCLOPHOSPHAMIDE. [Concomitant]
     Active Substance: CYCLOPHOSPHAMIDE
     Dates: start: 20150708
  8. DOXORUBICIN [Concomitant]
     Active Substance: DOXORUBICIN
     Indication: B-CELL LYMPHOMA
     Dates: start: 20150610
  9. VINCRISTINE [Concomitant]
     Active Substance: VINCRISTINE
     Dates: start: 20150805
  10. VINCRISTINE [Concomitant]
     Active Substance: VINCRISTINE
     Dates: start: 20151014
  11. PREDNISONE. [Concomitant]
     Active Substance: PREDNISONE
     Dates: start: 20150829
  12. PREDNISONE. [Concomitant]
     Active Substance: PREDNISONE
     Dates: start: 20150919
  13. CYCLOPHOSPHAMIDE. [Concomitant]
     Active Substance: CYCLOPHOSPHAMIDE
     Dates: start: 20150805
  14. DOXORUBICIN [Concomitant]
     Active Substance: DOXORUBICIN
     Dates: start: 20150805
  15. VINCRISTINE [Concomitant]
     Active Substance: VINCRISTINE
     Dates: start: 20150708
  16. VINCRISTINE [Concomitant]
     Active Substance: VINCRISTINE
     Dates: start: 20150919
  17. BENDAMUSTINE [Concomitant]
     Active Substance: BENDAMUSTINE
     Indication: B-CELL LYMPHOMA
     Dates: start: 20201125
  18. RITUXIMAB. [Suspect]
     Active Substance: RITUXIMAB
     Route: 065
     Dates: start: 20150829
  19. RITUXIMAB. [Suspect]
     Active Substance: RITUXIMAB
     Route: 065
     Dates: start: 20151014
  20. CYCLOPHOSPHAMIDE. [Concomitant]
     Active Substance: CYCLOPHOSPHAMIDE
     Indication: B-CELL LYMPHOMA
     Dates: start: 20150610
  21. VINCRISTINE [Concomitant]
     Active Substance: VINCRISTINE
     Dates: start: 20150829
  22. RITUXIMAB. [Suspect]
     Active Substance: RITUXIMAB
     Route: 065
     Dates: start: 20150805
  23. CYCLOPHOSPHAMIDE. [Concomitant]
     Active Substance: CYCLOPHOSPHAMIDE
     Dates: start: 20150829
  24. DOXORUBICIN [Concomitant]
     Active Substance: DOXORUBICIN
     Dates: start: 20150708
  25. CYCLOPHOSPHAMIDE. [Concomitant]
     Active Substance: CYCLOPHOSPHAMIDE
     Dates: start: 20150919
  26. DOXORUBICIN [Concomitant]
     Active Substance: DOXORUBICIN
     Dates: start: 20151014
  27. PREDNISONE. [Concomitant]
     Active Substance: PREDNISONE
     Dates: start: 20150805
  28. PREDNISONE. [Concomitant]
     Active Substance: PREDNISONE
     Dates: start: 20151014
  29. RITUXIMAB. [Suspect]
     Active Substance: RITUXIMAB
     Route: 065
     Dates: start: 20150919
  30. RITUXIMAB. [Suspect]
     Active Substance: RITUXIMAB
     Route: 065
     Dates: start: 20170615
  31. CYCLOPHOSPHAMIDE. [Concomitant]
     Active Substance: CYCLOPHOSPHAMIDE
     Dates: start: 20151014
  32. LENALIDOMIDE [Concomitant]
     Active Substance: LENALIDOMIDE
     Indication: B-CELL LYMPHOMA
     Dates: start: 20170615
  33. RITUXIMAB. [Suspect]
     Active Substance: RITUXIMAB
     Indication: B-CELL LYMPHOMA
     Route: 065
     Dates: start: 20150610
  34. PREDNISONE. [Concomitant]
     Active Substance: PREDNISONE
     Dates: start: 20150708
  35. DEXAMETHASONE. [Concomitant]
     Active Substance: DEXAMETHASONE
     Indication: B-CELL LYMPHOMA
     Dates: start: 20170615

REACTIONS (2)
  - Shock haemorrhagic [Unknown]
  - Epistaxis [Unknown]
